FAERS Safety Report 24308098 (Version 1)
Quarter: 2024Q3

REPORT INFORMATION
  Report Type: Other
  Country: US (occurrence: US)
  Receive Date: 20240911
  Receipt Date: 20240911
  Transmission Date: 20241017
  Serious: No
  Sender: SIGMA TAU
  Company Number: US-LEADIANT BIOSCIENCES, INC.-2023STPI000462

PATIENT
  Sex: Female

DRUGS (1)
  1. MATULANE [Suspect]
     Active Substance: PROCARBAZINE HYDROCHLORIDE
     Indication: Brain neoplasm
     Dosage: 50 MILLIGRAMS, TAKE 3 CAPSULES (150 MG TOTAL) ON DAYS 8-9 THEN 2 CAPSULES (100 MG TOTAL) ON DAYS 10-
     Route: 048
     Dates: start: 20230816

REACTIONS (7)
  - Fatigue [Unknown]
  - Headache [Unknown]
  - Nausea [Unknown]
  - Vomiting [Unknown]
  - Inflammation [Unknown]
  - Insomnia [Unknown]
  - Depression [Unknown]
